FAERS Safety Report 7495264-4 (Version None)
Quarter: 2011Q2

REPORT INFORMATION
  Report Type: 
  Country: None (occurrence: None)
  Receive Date: 20110522
  Receipt Date: 20110512
  Transmission Date: 20111010
  Serious: Yes (Other)
  Sender: FDA-Public Use
  Company Number: US-ALLERGAN-1102491US

PATIENT
  Age: 31 Year
  Sex: Female
  Weight: 60.771 kg

DRUGS (4)
  1. ACAI BERRY [Concomitant]
     Indication: SUPPLEMENTATION THERAPY
     Dosage: 500 MG, UNK
     Route: 048
     Dates: start: 20110208, end: 20110211
  2. VITAMIN D [Concomitant]
     Indication: SUPPLEMENTATION THERAPY
     Dosage: 1000 IU, QD
     Route: 048
     Dates: start: 20110208, end: 20110215
  3. PRENATAL VITAMINS [Concomitant]
     Indication: PREGNANCY
     Dosage: UNK
     Route: 048
     Dates: start: 20110215, end: 20110222
  4. BOTULINUM TOXIN TYPE A [Suspect]
     Indication: SKIN WRINKLING
     Dosage: 0.6 CC TOTAL
     Dates: start: 20110126, end: 20110126

REACTIONS (2)
  - ABORTION [None]
  - PREGNANCY [None]
